FAERS Safety Report 10674115 (Version 1)
Quarter: 2014Q4

REPORT INFORMATION
  Report Type: Spontaneous
  Country: DE (occurrence: DE)
  Receive Date: 20141224
  Receipt Date: 20141224
  Transmission Date: 20150529
  Serious: Yes (Other)
  Sender: FDA-Public Use
  Company Number: DE-PFIZER INC-2014350021

PATIENT
  Age: 29 Year
  Sex: Female

DRUGS (4)
  1. VENLAFAXINE HCL [Suspect]
     Active Substance: VENLAFAXINE HYDROCHLORIDE
     Indication: ANXIETY DISORDER
     Dosage: 1 DF, DAILY, 0 - 37.4 GESTATIONAL WEEK
     Route: 048
     Dates: start: 20140125, end: 20141015
  2. BISOPROLOL [Suspect]
     Active Substance: BISOPROLOL
     Indication: HYPERTENSION
     Dosage: 3.5 MG IN MORNING AND 2.5 MG AT NIGHT (6 MG/DAY), 0 - 37.4 GESTATIONAL WEEK
     Route: 048
     Dates: start: 20140125, end: 20141015
  3. VENLAFAXINE HCL [Suspect]
     Active Substance: VENLAFAXINE HYDROCHLORIDE
     Indication: DEPRESSION
  4. L-THYROXIN [Concomitant]
     Active Substance: LEVOTHYROXINE SODIUM
     Indication: HYPOTHYROIDISM
     Dosage: 87.5 ?G, DAILY (0 - 37.4 GESTATIONAL WEEK)
     Route: 048
     Dates: start: 20140125, end: 20141015

REACTIONS (2)
  - Gestational diabetes [Unknown]
  - Cervical incompetence [Unknown]

NARRATIVE: CASE EVENT DATE: 2014
